FAERS Safety Report 15228771 (Version 2)
Quarter: 2018Q3

REPORT INFORMATION
  Report Type: Spontaneous
  Country: DE (occurrence: DE)
  Receive Date: 20180801
  Receipt Date: 20180814
  Transmission Date: 20181010
  Serious: Yes (Other)
  Sender: FDA-Public Use
  Company Number: PHHY2018DE006344

PATIENT
  Age: 8 Year
  Sex: Male

DRUGS (4)
  1. PACLITAXEL. [Suspect]
     Active Substance: PACLITAXEL
     Indication: EWING^S SARCOMA
     Dosage: 175 MG/M2, UNK
     Route: 042
  2. VORINOSTAT [Suspect]
     Active Substance: VORINOSTAT
     Indication: EWING^S SARCOMA
     Dosage: 100 MG, UNK
     Route: 048
  3. IDARUBICIN [Suspect]
     Active Substance: IDARUBICIN
     Indication: EWING^S SARCOMA
     Dosage: 5.5 MG/M2, UNK
     Route: 048
  4. ICLUSIG [Suspect]
     Active Substance: PONATINIB
     Indication: EWING^S SARCOMA
     Dosage: 15 MG, UNK
     Route: 048

REACTIONS (7)
  - Lymphopenia [Unknown]
  - Off label use [Unknown]
  - Drug administered to patient of inappropriate age [Unknown]
  - Ewing^s sarcoma [Unknown]
  - Product use in unapproved indication [Unknown]
  - Neutropenia [Unknown]
  - Malignant neoplasm progression [Unknown]
